FAERS Safety Report 5654699-2 (Version None)
Quarter: 2008Q1

REPORT INFORMATION
  Report Type: 
  Country: None (occurrence: None)
  Receive Date: 20080307
  Receipt Date: 20080225
  Transmission Date: 20080703
  Serious: Yes (Hospitalization)
  Sender: FDA-Public Use
  Company Number: US-JNJFOC-20071109427

PATIENT
  Age: 15 Year
  Sex: Female

DRUGS (2)
  1. IMODIUM ADVANCED [Suspect]
     Indication: ABDOMINAL PAIN UPPER
     Route: 048
  2. IMODIUM ADVANCED [Suspect]
     Indication: DIARRHOEA
     Route: 048

REACTIONS (2)
  - GASTROENTERITIS ESCHERICHIA COLI [None]
  - PANCREATITIS [None]
